FAERS Safety Report 7284063-4 (Version None)
Quarter: 2011Q1

REPORT INFORMATION
  Report Type: 
  Country: None (occurrence: None)
  Receive Date: 20110209
  Receipt Date: 20110207
  Transmission Date: 20110831
  Serious: Yes (Other)
  Sender: FDA-Public Use
  Company Number: DE-ABBOTT-11P-062-0703221-00

PATIENT
  Age: 59 Year
  Sex: Female

DRUGS (4)
  1. HUMIRA [Suspect]
     Indication: RHEUMATOID ARTHRITIS
     Route: 058
     Dates: start: 20041101
  2. METHOTREXAT [Concomitant]
  3. METHOTREXAT [Concomitant]
  4. METHOTREXAT [Concomitant]
     Indication: PRODUCT USED FOR UNKNOWN INDICATION
     Dates: start: 20060101

REACTIONS (4)
  - DRY EYE [None]
  - FATIGUE [None]
  - DRY SKIN [None]
  - ACTIVITIES OF DAILY LIVING IMPAIRED [None]
